FAERS Safety Report 8563630-1 (Version None)
Quarter: 2012Q3

REPORT INFORMATION
  Report Type: 
  Country: None (occurrence: None)
  Receive Date: 20120803
  Receipt Date: 20120723
  Transmission Date: 20120928
  Serious: Yes (Death, Life-Threatening)
  Sender: FDA-Public Use
  Company Number: FR-BIOGENIDEC-2012BI022649

PATIENT
  Age: 27 Year
  Sex: Female

DRUGS (6)
  1. PAROXETINE [Concomitant]
     Route: 048
     Dates: start: 20080101, end: 20111216
  2. BACLOFEN [Concomitant]
     Indication: MUSCLE SPASTICITY
     Route: 048
     Dates: start: 20080101, end: 20111216
  3. TYSABRI [Suspect]
     Indication: MULTIPLE SCLEROSIS
     Route: 042
     Dates: start: 20071004, end: 20101124
  4. PRAZEPAM [Concomitant]
     Dates: end: 20111216
  5. DOMPERIDONE [Concomitant]
     Dates: end: 20111216
  6. NUTRITION [Concomitant]
     Dates: start: 20101101, end: 20111216

REACTIONS (1)
  - PNEUMONIA ASPIRATION [None]
